FAERS Safety Report 13136528 (Version 1)
Quarter: 2017Q1

REPORT INFORMATION
  Report Type: Report from Study
  Country: FR (occurrence: FR)
  Receive Date: 20170123
  Receipt Date: 20170123
  Transmission Date: 20170428
  Serious: Yes (Hospitalization, Other)
  Sender: FDA-Public Use
  Company Number: FR-BRISTOL-MYERS SQUIBB COMPANY-21144183

PATIENT
  Age: 57 Year
  Sex: Male
  Weight: 84 kg

DRUGS (7)
  1. LASILIX                            /00032601/ [Concomitant]
     Active Substance: FUROSEMIDE
     Indication: ASCITES
     Dosage: 20 MG, UNK
     Route: 048
     Dates: start: 20141119
  2. DACLATASVIR DIHYDROCHLORIDE [Suspect]
     Active Substance: DACLATASVIR DIHYDROCHLORIDE
     Indication: HEPATITIS C
     Dosage: 60 MG, QD
     Route: 048
     Dates: start: 20140528
  3. SOFOSBUVIR [Concomitant]
     Active Substance: SOFOSBUVIR
     Indication: HEPATITIS C
     Dosage: 400 MG, QD
     Route: 048
     Dates: start: 20140528
  4. TRAMADOL. [Concomitant]
     Active Substance: TRAMADOL
     Indication: ABDOMINAL PAIN
     Route: 065
  5. PIASCLEDINE [Concomitant]
     Active Substance: AVOCADO OIL\SOYBEAN OIL
     Indication: OSTEOARTHRITIS
     Dosage: UNK UNK, QD
     Route: 065
     Dates: start: 20120501
  6. SPASFON                            /00765801/ [Concomitant]
     Active Substance: PHLOROGLUCINOL\1,3,5-TRIMETHOXYBENZENE
     Indication: ABDOMINAL PAIN
     Route: 065
  7. ALDACTONE [Concomitant]
     Active Substance: SPIRONOLACTONE
     Indication: ASCITES
     Dosage: 50 MG, UNK
     Route: 048
     Dates: start: 20141119

REACTIONS (5)
  - Hepatocellular carcinoma [Unknown]
  - Abdominal cavity drainage [Recovered/Resolved]
  - Hepatic cirrhosis [Recovered/Resolved]
  - Ascites [Recovered/Resolved with Sequelae]
  - Liver transplant [Recovered/Resolved]

NARRATIVE: CASE EVENT DATE: 20140624
